FAERS Safety Report 14072065 (Version 12)
Quarter: 2019Q4

REPORT INFORMATION
  Report Type: Spontaneous
  Country: US (occurrence: US)
  Receive Date: 20171011
  Receipt Date: 20191104
  Transmission Date: 20200122
  Serious: No
  Sender: FDA-Public Use
  Company Number: US-PFIZER INC-2017436683

PATIENT
  Age: 73 Year
  Sex: Female
  Weight: 59.42 kg

DRUGS (5)
  1. IBRANCE [Suspect]
     Active Substance: PALBOCICLIB
     Dosage: 125 MG, CYCLIC (Q 1-21 Q 28 DAYS)
     Route: 048
     Dates: start: 20170925
  2. IBRANCE [Suspect]
     Active Substance: PALBOCICLIB
     Indication: BREAST CANCER METASTATIC
     Dosage: 125 MG, CYCLIC (1 DAILY X 21 DAYS ON, 7 DAYS OFF)
     Route: 048
     Dates: start: 20170922
  3. IBRANCE [Suspect]
     Active Substance: PALBOCICLIB
     Dosage: 125 MG, DAILY (DAILY X 21 DAYS, EVERY 28DAYS)
     Route: 048
     Dates: start: 201709
  4. IBRANCE [Suspect]
     Active Substance: PALBOCICLIB
     Dosage: 125 MG, CYCLIC (D1-21 EVERYDAY28 DAYS)
     Route: 048
     Dates: start: 20170925
  5. LETROZOLE. [Concomitant]
     Active Substance: LETROZOLE
     Indication: BREAST CANCER FEMALE
     Dosage: 2.5 MG, DAILY
     Dates: start: 201710

REACTIONS (25)
  - Rash erythematous [Unknown]
  - Cough [Unknown]
  - Blood count abnormal [Unknown]
  - Rhinorrhoea [Unknown]
  - Fatigue [Not Recovered/Not Resolved]
  - Platelet count abnormal [Unknown]
  - Oral herpes [Unknown]
  - Platelet count decreased [Unknown]
  - Blood creatinine increased [Unknown]
  - Mucosal inflammation [Recovering/Resolving]
  - Productive cough [Unknown]
  - Sciatica [Unknown]
  - Stomatitis [Recovering/Resolving]
  - White blood cell count decreased [Not Recovered/Not Resolved]
  - Nasopharyngitis [Unknown]
  - Intervertebral disc protrusion [Unknown]
  - Alopecia [Unknown]
  - Back pain [Not Recovered/Not Resolved]
  - Cheilitis [Recovering/Resolving]
  - Pain in extremity [Unknown]
  - Laryngitis [Unknown]
  - Acne [Unknown]
  - Pruritus [Unknown]
  - Lacrimation increased [Unknown]
  - Rash [Recovered/Resolved]

NARRATIVE: CASE EVENT DATE: 201710
